FAERS Safety Report 8541383-0 (Version None)
Quarter: 2012Q3

REPORT INFORMATION
  Report Type: 
  Country: None (occurrence: None)
  Receive Date: 20120726
  Receipt Date: 20120720
  Transmission Date: 20120928
  Serious: Yes (Other)
  Sender: FDA-Public Use
  Company Number: US-BAYER-2012-073351

PATIENT
  Age: 82 Year
  Sex: Female
  Weight: 55 kg

DRUGS (2)
  1. ALEVE (CAPLET) [Suspect]
     Indication: ARTHRITIS
     Dosage: 2 DF, BID
     Route: 048
     Dates: start: 20120701
  2. CLONAZEPAM [Concomitant]

REACTIONS (3)
  - DECREASED APPETITE [None]
  - FAECES DISCOLOURED [None]
  - EPISTAXIS [None]
